FAERS Safety Report 10223557 (Version 1)
Quarter: 2014Q2

REPORT INFORMATION
  Report Type: Spontaneous
  Country: US (occurrence: US)
  Receive Date: 20140609
  Receipt Date: 20140609
  Transmission Date: 20141212
  Serious: No
  Sender: FDA-Public Use
  Company Number: US-B.I. PHARMACEUTICALS,INC./RIDGEFIELD-2014-BI-23730BP

PATIENT
  Age: 64 Year
  Sex: Female
  Weight: 59 kg

DRUGS (2)
  1. SPIRIVA [Suspect]
     Indication: ASTHMA
     Dosage: 18 MCG
     Route: 055
     Dates: start: 20140518, end: 20140527
  2. VENTOLIN [Concomitant]
     Indication: ASTHMA
     Route: 055

REACTIONS (3)
  - Chest pain [Not Recovered/Not Resolved]
  - Dyspnoea [Not Recovered/Not Resolved]
  - Off label use [Recovered/Resolved]
